FAERS Safety Report 7221223-2 (Version None)
Quarter: 2011Q1

REPORT INFORMATION
  Report Type: 
  Country: None (occurrence: None)
  Receive Date: 20110112
  Receipt Date: 20110105
  Transmission Date: 20110831
  Serious: Yes (Death)
  Sender: FDA-Public Use
  Company Number: DE-BAXTER-2010BH027913

PATIENT
  Age: 54 Year
  Sex: Female

DRUGS (2)
  1. TISSUCOL/TISSEEL KIT STIM3 [Suspect]
     Indication: FACE LIFT
     Route: 065
     Dates: start: 20080320, end: 20080320
  2. CLEXANE /NET/ [Concomitant]
     Indication: THROMBOSIS PROPHYLAXIS
     Route: 058
     Dates: start: 20080320

REACTIONS (1)
  - PULMONARY EMBOLISM [None]
